FAERS Safety Report 8895220 (Version 1)
Quarter: 2012Q4

REPORT INFORMATION
  Report Type: 
  Country: US (occurrence: US)
  Receive Date: 20121107
  Receipt Date: 20121107
  Transmission Date: 20130627
  Serious: No
  Sender: FDA-Public Use
  Company Number: US-AMGEN-USASP2011061644

PATIENT
  Age: 23 Year
  Sex: Male

DRUGS (3)
  1. ENBREL [Suspect]
     Indication: RHEUMATOID ARTHRITIS
     Dosage: 50 mg, qwk
     Dates: start: 20111116, end: 201112
  2. PLAQUENIL                          /00072602/ [Concomitant]
     Dosage: 1 mg, qd
     Dates: start: 2011
  3. METHOTREXATE [Concomitant]
     Dosage: 8 mg, qwk
     Dates: start: 2011

REACTIONS (1)
  - Headache [Recovered/Resolved]
